FAERS Safety Report 22912386 (Version 5)
Quarter: 2024Q1

REPORT INFORMATION
  Report Type: Report from Study
  Country: US (occurrence: US)
  Receive Date: 20230906
  Receipt Date: 20240314
  Transmission Date: 20240410
  Serious: Yes (Hospitalization)
  Sender: FDA-Public Use
  Company Number: US-ARGENX-2023-ARGX-US002377

PATIENT

DRUGS (2)
  1. VYVGART [Suspect]
     Active Substance: EFGARTIGIMOD ALFA-FCAB
     Indication: Myasthenia gravis
     Dosage: 10 MG/KG
     Route: 042
     Dates: start: 20230714
  2. SOLIRIS [Concomitant]
     Active Substance: ECULIZUMAB
     Indication: Product used for unknown indication
     Route: 065

REACTIONS (14)
  - Thrombosis [Unknown]
  - Malaise [Unknown]
  - Balance disorder [Unknown]
  - Insomnia [Unknown]
  - Headache [Unknown]
  - Tooth abscess [Unknown]
  - Urinary tract infection [Unknown]
  - Poor venous access [Unknown]
  - Pyrexia [Unknown]
  - Neck pain [Unknown]
  - Central venous catheterisation [Unknown]
  - Vascular device occlusion [Unknown]
  - Asthenia [Unknown]
  - Urinary tract infection [Unknown]

NARRATIVE: CASE EVENT DATE: 20230714
